FAERS Safety Report 16646621 (Version 1)
Quarter: 2019Q3

REPORT INFORMATION
  Report Type: Spontaneous
  Country: US (occurrence: US)
  Receive Date: 20190615
  Receipt Date: 20190615
  Transmission Date: 20191004
  Serious: Yes (Death, Hospitalization)
  Sender: FDA-Public Use
  Company Number: None

PATIENT
  Age: 67 Year
  Sex: Male
  Weight: 87.4 kg

DRUGS (1)
  1. NEXAVAR [Suspect]
     Active Substance: SORAFENIB
     Dates: end: 20150212

REACTIONS (13)
  - Weight decreased [None]
  - Alpha 1 foetoprotein increased [None]
  - Ascites [None]
  - Azotaemia [None]
  - Blood creatine increased [None]
  - Dehydration [None]
  - Jaundice [None]
  - Disease progression [None]
  - Blood bilirubin increased [None]
  - Acute kidney injury [None]
  - Hepatocellular carcinoma [None]
  - Fatigue [None]
  - Ocular icterus [None]

NARRATIVE: CASE EVENT DATE: 20150228
